FAERS Safety Report 7864899-9 (Version None)
Quarter: 2011Q4

REPORT INFORMATION
  Report Type: 
  Country: None (occurrence: None)
  Receive Date: 20111028
  Receipt Date: 20100915
  Transmission Date: 20120403
  Serious: No
  Sender: FDA-Public Use
  Company Number: US-GLAXOSMITHKLINE-A0881288A

PATIENT
  Age: 78 Year
  Sex: Female

DRUGS (10)
  1. LASIX [Concomitant]
  2. POTASSIUM [Concomitant]
  3. CIPROFLOXACIN [Concomitant]
     Indication: DIVERTICULITIS
  4. UNSPECIFIED MEDICATION [Concomitant]
     Indication: GASTROOESOPHAGEAL REFLUX DISEASE
  5. PREMARIN [Concomitant]
  6. ADVAIR DISKUS 100/50 [Suspect]
     Indication: ASTHMA
     Dosage: 1PUFF TWICE PER DAY
     Route: 055
  7. PREMARIN /PROVERA [Concomitant]
  8. DIOVAN [Concomitant]
  9. PROVENTIL [Concomitant]
  10. ISOSORBIDE DINITRATE [Concomitant]

REACTIONS (3)
  - FATIGUE [None]
  - OROPHARYNGEAL DISCOMFORT [None]
  - DRUG INEFFECTIVE [None]
